FAERS Safety Report 11004260 (Version 2)
Quarter: 2015Q2

REPORT INFORMATION
  Report Type: Spontaneous
  Country: US (occurrence: US)
  Receive Date: 20150409
  Receipt Date: 20150414
  Transmission Date: 20150821
  Serious: Yes (Other)
  Sender: FDA-Public Use
  Company Number: US-RB-075629-15

PATIENT
  Age: 62 Year
  Sex: Male

DRUGS (2)
  1. MUCINEX [Suspect]
     Active Substance: GUAIFENESIN
     Indication: PRODUCT USED FOR UNKNOWN INDICATION
     Dosage: AMOUNT USED: 5 DAYS; PRODUCT LAST USED ON 30-MAR-2015.
     Route: 065
  2. ASPIRIN. [Suspect]
     Active Substance: ASPIRIN
     Indication: KNEE OPERATION
     Dosage: TAKING 325 2 TIMES A DAY.
     Route: 065

REACTIONS (3)
  - Hypertension [Recovered/Resolved]
  - Epistaxis [Unknown]
  - Incorrect drug administration duration [Unknown]

NARRATIVE: CASE EVENT DATE: 201503
